FAERS Safety Report 5335514-3 (Version None)
Quarter: 2007Q2

REPORT INFORMATION
  Report Type: 
  Country: None (occurrence: None)
  Receive Date: 20070522
  Receipt Date: 20070511
  Transmission Date: 20071010
  Serious: Yes (Other)
  Sender: FDA-Public Use
  Company Number: 2007BI006403

PATIENT
  Age: 48 Year
  Sex: Female

DRUGS (20)
  1. AVONEX [Suspect]
     Indication: MULTIPLE SCLEROSIS
     Dosage: 30 UG; QW; IM
     Route: 030
     Dates: start: 20031101, end: 20050101
  2. AVONEX [Suspect]
     Indication: MULTIPLE SCLEROSIS
     Dosage: 30 UG; QW; IM
     Route: 030
     Dates: start: 20060101
  3. ALBUTEROL [Concomitant]
  4. ATROVENT [Concomitant]
  5. CHANTIX [Concomitant]
  6. FLEXERIL [Concomitant]
  7. FLONASE [Concomitant]
  8. FLOVENT [Concomitant]
  9. GEMFIBROZIL [Concomitant]
  10. GLUCOTROL [Concomitant]
  11. HYDROCHLOROTHIAZIDE [Concomitant]
  12. KETOCONAZOLE [Concomitant]
  13. MS CONTIN [Concomitant]
  14. NAPROSYN [Concomitant]
  15. NEURONTIN [Concomitant]
  16. NEXIUM [Concomitant]
  17. NITROGLYCERIN [Concomitant]
  18. PHENERGAN HCL [Concomitant]
  19. PREVACID [Concomitant]
  20. REGLAN [Concomitant]

REACTIONS (1)
  - VAGINAL CANCER RECURRENT [None]
